FAERS Safety Report 11386013 (Version 1)
Quarter: 2015Q3

REPORT INFORMATION
  Report Type: Spontaneous
  Country: US (occurrence: None)
  Receive Date: 20150813
  Receipt Date: 20150813
  Transmission Date: 20151125
  Serious: Yes (Other)
  Sender: FDA-Public Use
  Company Number: None

PATIENT
  Age: 59 Year
  Sex: Female
  Weight: 89.81 kg

DRUGS (3)
  1. FAMOTIDINE 20MG [Suspect]
     Active Substance: FAMOTIDINE
     Dosage: 1 VIAL
     Route: 042
     Dates: start: 20150804, end: 20150806
  2. AUBAGIO [Concomitant]
     Active Substance: TERIFLUNOMIDE
  3. SOLU-MEDROL [Suspect]
     Active Substance: METHYLPREDNISOLONE SODIUM SUCCINATE
     Indication: MULTIPLE SCLEROSIS
     Dosage: 1 VIAL
     Route: 042
     Dates: start: 20150804, end: 20150806

REACTIONS (2)
  - Dyspnoea [None]
  - Chest discomfort [None]

NARRATIVE: CASE EVENT DATE: 20150808
